FAERS Safety Report 23848869 (Version 1)
Quarter: 2024Q2

REPORT INFORMATION
  Report Type: Report from Study
  Country: CA (occurrence: CA)
  Receive Date: 20240513
  Receipt Date: 20240513
  Transmission Date: 20240715
  Serious: Yes (Other)
  Sender: FDA-Public Use
  Company Number: CA-ABBVIE-5754380

PATIENT
  Age: 67 Year
  Sex: Female

DRUGS (1)
  1. SKYRIZI [Suspect]
     Active Substance: RISANKIZUMAB-RZAA
     Indication: Psoriasis
     Route: 058
     Dates: start: 20200129

REACTIONS (4)
  - Coronary artery occlusion [Recovering/Resolving]
  - Oral candidiasis [Recovering/Resolving]
  - Tooth abscess [Recovering/Resolving]
  - Bleeding varicose vein [Recovering/Resolving]

NARRATIVE: CASE EVENT DATE: 20240401
